FAERS Safety Report 6692799-9 (Version None)
Quarter: 2010Q2

REPORT INFORMATION
  Report Type: 
  Country: None (occurrence: None)
  Receive Date: 20100419
  Receipt Date: 20100401
  Transmission Date: 20101027
  Serious: Yes (Hospitalization)
  Sender: FDA-Public Use
  Company Number: DSA_42903_2010

PATIENT
  Sex: Female

DRUGS (2)
  1. BUPROPION HCL [Suspect]
     Indication: DEPRESSION
     Dosage: 4500 MG 1X
     Dates: start: 20091211
  2. SERTRALINE HYDROCHLORIDE [Concomitant]

REACTIONS (7)
  - DRUG TOXICITY [None]
  - HALLUCINATION, VISUAL [None]
  - HEART RATE INCREASED [None]
  - OVERDOSE [None]
  - PSYCHOMOTOR HYPERACTIVITY [None]
  - RESPIRATORY RATE INCREASED [None]
  - TREMOR [None]
